FAERS Safety Report 5759412-6 (Version None)
Quarter: 2008Q2

REPORT INFORMATION
  Report Type: 
  Country: None (occurrence: None)
  Receive Date: 20080604
  Receipt Date: 20080604
  Transmission Date: 20081010
  Serious: No
  Sender: FDA-Public Use
  Company Number: None

PATIENT
  Age: 73 Year
  Sex: Female
  Weight: 90.7194 kg

DRUGS (2)
  1. CIPROFLOXACIN HCL [Suspect]
     Indication: CYSTITIS
     Dosage: 2X DAY NOV 07
     Dates: start: 20071105
  2. FUCO THIN [Suspect]
     Indication: WEIGHT CONTROL

REACTIONS (2)
  - ABASIA [None]
  - ARTHRALGIA [None]
